FAERS Safety Report 7309550-1 (Version None)
Quarter: 2011Q1

REPORT INFORMATION
  Report Type: 
  Country: None (occurrence: None)
  Receive Date: 20110223
  Receipt Date: 20110221
  Transmission Date: 20110831
  Serious: Yes (Death)
  Sender: FDA-Public Use
  Company Number: US-B.I. PHARMACEUTICALS,INC./RIDGEFIELD-2010-BP-14088BP

PATIENT
  Sex: Female

DRUGS (9)
  1. DIOVAN [Concomitant]
     Dosage: 320 MG
  2. CATAPRES-TTS-1 [Suspect]
     Indication: HYPERTENSION
     Dosage: 0.2 MG
     Route: 061
  3. TIAZAC [Concomitant]
     Dosage: 360 MG
  4. LIPITOR [Concomitant]
     Dosage: 80 MG
  5. HYDRALAZINE [Concomitant]
  6. ASPIRIN [Concomitant]
     Dosage: 81 MG
  7. INSPRA [Concomitant]
     Dosage: 50 MG
  8. TOPROL-XL [Concomitant]
  9. NEURONTIN [Concomitant]

REACTIONS (4)
  - CARDIO-RESPIRATORY ARREST [None]
  - SEPSIS [None]
  - HYPOXIC-ISCHAEMIC ENCEPHALOPATHY [None]
  - CARDIAC ARREST [None]
